FAERS Safety Report 11250596 (Version 1)
Quarter: 2015Q3

REPORT INFORMATION
  Report Type: Spontaneous
  Country: US (occurrence: US)
  Receive Date: 20150708
  Receipt Date: 20150708
  Transmission Date: 20151125
  Serious: Yes (Death)
  Sender: FDA-Public Use
  Company Number: US-ELI_LILLY_AND_COMPANY-US201101001681

PATIENT
  Sex: Male
  Weight: 68.93 kg

DRUGS (18)
  1. PRIMATENE [Concomitant]
     Active Substance: EPHEDRINE HYDROCHLORIDE\GUAIFENESIN
  2. GEMZAR [Suspect]
     Active Substance: GEMCITABINE HYDROCHLORIDE
     Indication: NON-SMALL CELL LUNG CANCER
     Dosage: 2280 MG, WEEKLY (1/W)
     Route: 042
     Dates: start: 20100914
  3. ATIVAN [Concomitant]
     Active Substance: LORAZEPAM
  4. MEGACE [Concomitant]
     Active Substance: MEGESTROL ACETATE
  5. TYLENOL [Concomitant]
     Active Substance: ACETAMINOPHEN
  6. MEDROL [Concomitant]
     Active Substance: METHYLPREDNISOLONE
  7. NITROGLYCERIN. [Concomitant]
     Active Substance: NITROGLYCERIN
  8. CARBOPLATIN. [Concomitant]
     Active Substance: CARBOPLATIN
  9. ATENOLOL. [Concomitant]
     Active Substance: ATENOLOL
  10. DECADRON [Concomitant]
     Active Substance: DEXAMETHASONE
  11. LORTAB [Concomitant]
     Active Substance: ACETAMINOPHEN\HYDROCODONE BITARTRATE
  12. NORVASC [Concomitant]
     Active Substance: AMLODIPINE BESYLATE
  13. LASIX [Concomitant]
     Active Substance: FUROSEMIDE
  14. PROTONIX [Concomitant]
     Active Substance: PANTOPRAZOLE SODIUM
  15. TRICOR [Concomitant]
     Active Substance: FENOFIBRATE
  16. COMBIVENT [Concomitant]
     Active Substance: ALBUTEROL SULFATE\IPRATROPIUM BROMIDE
  17. COMPAZINE [Concomitant]
     Active Substance: PROCHLORPERAZINE MALEATE
  18. SPIRIVA [Concomitant]
     Active Substance: TIOTROPIUM BROMIDE MONOHYDRATE

REACTIONS (1)
  - Malignant neoplasm progression [Fatal]
